FAERS Safety Report 20744465 (Version 1)
Quarter: 2022Q2

REPORT INFORMATION
  Report Type: Spontaneous
  Country: US (occurrence: None)
  Receive Date: 20220425
  Receipt Date: 20220425
  Transmission Date: 20220721
  Serious: No
  Sender: FDA-Public Use
  Company Number: None

PATIENT
  Sex: Female

DRUGS (3)
  1. OPSUMIT [Suspect]
     Active Substance: MACITENTAN
     Indication: Pulmonary arterial hypertension
     Dosage: FREQUENCY : DAILY;?
     Route: 048
     Dates: start: 20210903
  2. ORENITRAM [Suspect]
     Active Substance: TREPROSTINIL
  3. ADEMPAS [Suspect]
     Active Substance: RIOCIGUAT

REACTIONS (1)
  - COVID-19 [None]
